FAERS Safety Report 14672551 (Version 2)
Quarter: 2018Q1

REPORT INFORMATION
  Report Type: Spontaneous
  Country: US (occurrence: US)
  Receive Date: 20180323
  Receipt Date: 20180326
  Transmission Date: 20180509
  Serious: No
  Sender: FDA-Public Use
  Company Number: US-PFIZER INC-2018118692

PATIENT
  Age: 6 Decade
  Sex: Female

DRUGS (3)
  1. IBRANCE [Suspect]
     Active Substance: PALBOCICLIB
     Indication: BREAST CANCER METASTATIC
     Dosage: 125 MG, CYCLIC (21 DAYS ON 7 DAYS OFF)
     Route: 048
     Dates: start: 201609
  2. LETROZOLE. [Concomitant]
     Active Substance: LETROZOLE
     Indication: BREAST CANCER
     Dosage: UNK
     Dates: start: 201609
  3. XGEVA [Concomitant]
     Active Substance: DENOSUMAB
     Indication: METASTASES TO BONE
     Dosage: UNK

REACTIONS (1)
  - Loose tooth [Not Recovered/Not Resolved]
